FAERS Safety Report 11088192 (Version 1)
Quarter: 2015Q2

REPORT INFORMATION
  Report Type: Spontaneous
  Country: US (occurrence: US)
  Receive Date: 20150504
  Receipt Date: 20150504
  Transmission Date: 20150821
  Serious: Yes (Death)
  Sender: FDA-Public Use
  Company Number: US-ENDO PHARMACEUTICALS INC.-201501165

PATIENT
  Age: 78 Year
  Sex: Male
  Weight: 93.07 kg

DRUGS (1)
  1. TESTOPEL [Suspect]
     Active Substance: TESTOSTERONE
     Indication: BLOOD TESTOSTERONE DECREASED
     Route: 058
     Dates: start: 2010, end: 2013

REACTIONS (2)
  - Cerebrovascular accident [Fatal]
  - Cardiac failure [Fatal]

NARRATIVE: CASE EVENT DATE: 20131116
